FAERS Safety Report 10975205 (Version 1)
Quarter: 2015Q2

REPORT INFORMATION
  Report Type: Spontaneous
  Country: US (occurrence: US)
  Receive Date: 20150401
  Receipt Date: 20150401
  Transmission Date: 20150821
  Serious: Yes (Hospitalization)
  Sender: FDA-Public Use
  Company Number: US-ASTRAZENECA-2015SE29731

PATIENT
  Age: 49 Year
  Sex: Male

DRUGS (1)
  1. BRILINTA [Suspect]
     Active Substance: TICAGRELOR
     Indication: ACUTE CORONARY SYNDROME
     Route: 048
     Dates: start: 201502

REACTIONS (3)
  - Intentional product misuse [Unknown]
  - Acute coronary syndrome [Unknown]
  - Chest pain [Unknown]

NARRATIVE: CASE EVENT DATE: 20150324
